FAERS Safety Report 24378240 (Version 1)
Quarter: 2024Q3

REPORT INFORMATION
  Report Type: Spontaneous
  Country: US (occurrence: US)
  Receive Date: 20240930
  Receipt Date: 20240930
  Transmission Date: 20241016
  Serious: No
  Sender: BIONPHARMA
  Company Number: US-Bion-013906

PATIENT
  Sex: Male

DRUGS (1)
  1. ATOVAQUONE [Suspect]
     Active Substance: ATOVAQUONE
     Indication: Babesiosis
     Dates: end: 20240919

REACTIONS (3)
  - Abdominal pain upper [Unknown]
  - Recalled product administered [Unknown]
  - Diarrhoea [Unknown]
